FAERS Safety Report 10509859 (Version 2)
Quarter: 2014Q4

REPORT INFORMATION
  Report Type: Spontaneous
  Country: DE (occurrence: DE)
  Receive Date: 20141010
  Receipt Date: 20141128
  Transmission Date: 20150528
  Serious: Yes (Other)
  Sender: FDA-Public Use
  Company Number: DE-JNJFOC-20141000283

PATIENT
  Sex: Female
  Weight: 55 kg

DRUGS (2)
  1. IMODIUM [Suspect]
     Active Substance: LOPERAMIDE HYDROCHLORIDE
     Indication: IRRITABLE BOWEL SYNDROME
     Dosage: UPTO 8 CAPSULES (16 MG) PER DAY.
     Route: 048
  2. IMODIUM [Suspect]
     Active Substance: LOPERAMIDE HYDROCHLORIDE
     Indication: PROPHYLAXIS
     Dosage: UPTO 8 CAPSULES (16 MG) PER DAY.
     Route: 048

REACTIONS (3)
  - Overdose [Unknown]
  - Drug dependence [Unknown]
  - Off label use [Unknown]
